FAERS Safety Report 15207412 (Version 1)
Quarter: 2018Q4

REPORT INFORMATION
  Report Type: Spontaneous
  Country: DE (occurrence: DE)
  Receive Date: 20180727
  Receipt Date: 20180727
  Transmission Date: 20190204
  Serious: Yes (Other)
  Sender: FDA-Public Use
  Company Number: DE-TEVA-2018-DE-930933

PATIENT
  Age: 56 Year
  Sex: Male
  Weight: 62 kg

DRUGS (1)
  1. OXYCODON 5MG [Suspect]
     Active Substance: OXYCODONE
     Indication: PAIN
     Dosage: 20 MILLIGRAM DAILY; OF 2 X 5 MG / DAILY AT THE MOMENT ON 4X5MG / DAILY ELEVATED
     Route: 048
     Dates: start: 20180601

REACTIONS (8)
  - Nausea [Unknown]
  - Irritability [Unknown]
  - Aggression [Unknown]
  - Drug dependence [Unknown]
  - Dizziness [Unknown]
  - Personality change [Unknown]
  - Loss of personal independence in daily activities [Unknown]
  - Inadequate analgesia [Unknown]

NARRATIVE: CASE EVENT DATE: 20180601
